FAERS Safety Report 19844337 (Version 1)
Quarter: 2021Q3

REPORT INFORMATION
  Report Type: Spontaneous
  Country: NL (occurrence: NL)
  Receive Date: 20210916
  Receipt Date: 20210916
  Transmission Date: 20211014
  Serious: Yes (Other)
  Sender: FDA-Public Use
  Company Number: NL-MYLANLABS-2021M1062853

PATIENT
  Sex: Female
  Weight: 66 kg

DRUGS (3)
  1. ETHINYLESTRADIOL [Concomitant]
     Active Substance: ETHINYL ESTRADIOL
     Dosage: TABLET, 20/100 ?G (MICROGRAM)
  2. VENLAFAXINE [Suspect]
     Active Substance: VENLAFAXINE HYDROCHLORIDE
     Indication: DEPRESSION
  3. VENLAFAXINE [Suspect]
     Active Substance: VENLAFAXINE HYDROCHLORIDE
     Indication: ANXIETY
     Dosage: 150 MILLIGRAM, QD, 1X PER DAY 1 PIECE
     Dates: start: 201803

REACTIONS (2)
  - Apnoea [Recovered/Resolved]
  - Snoring [Recovered/Resolved]
